FAERS Safety Report 22293951 (Version 1)
Quarter: 2023Q2

REPORT INFORMATION
  Report Type: Report from Study
  Country: HR (occurrence: HR)
  Receive Date: 20230508
  Receipt Date: 20230508
  Transmission Date: 20230722
  Serious: Yes (Other)
  Sender: FDA-Public Use
  Company Number: HR-SUN PHARMACEUTICAL INDUSTRIES LTD-2023R1-387582

PATIENT
  Sex: Male

DRUGS (7)
  1. FENTANYL [Suspect]
     Active Substance: FENTANYL
     Indication: General anaesthesia
     Dosage: UNK (100 UG)
     Route: 065
  2. MIDAZOLAM [Suspect]
     Active Substance: MIDAZOLAM
     Indication: General anaesthesia
     Dosage: UNK (2.5 MG)
     Route: 065
  3. MORPHINE [Suspect]
     Active Substance: MORPHINE
     Indication: Epidural analgesia
     Dosage: UNK (3.2 MG)
     Route: 008
  4. PROPOFOL [Suspect]
     Active Substance: PROPOFOL
     Indication: General anaesthesia
     Dosage: UNK (1-2 MG/KG)
     Route: 065
  5. TRAMADOL [Suspect]
     Active Substance: TRAMADOL
     Indication: Analgesic therapy
     Dosage: UNK (100 MG IN THE FIRST HOUR,300 MG DURING THE FOLLOWING 24 H)
     Route: 042
  6. VECURONIUM [Suspect]
     Active Substance: VECURONIUM BROMIDE
     Indication: General anaesthesia
     Dosage: UNK (0.1 MG/KG)
     Route: 065
  7. ROPIVACAINE [Suspect]
     Active Substance: ROPIVACAINE
     Indication: Epidural analgesia
     Dosage: UNK
     Route: 008

REACTIONS (1)
  - Delirium [Unknown]
